FAERS Safety Report 24660422 (Version 1)
Quarter: 2024Q4

REPORT INFORMATION
  Report Type: Spontaneous
  Country: US (occurrence: None)
  Receive Date: 20241124
  Receipt Date: 20241124
  Transmission Date: 20250115
  Serious: No
  Sender: Public
  Company Number: None

PATIENT
  Age: 41 Year
  Sex: Female
  Weight: 67.5 kg

DRUGS (4)
  1. CIPROFLOXACIN HYDROCHLORIDE [Suspect]
     Active Substance: CIPROFLOXACIN HYDROCHLORIDE
     Indication: Sinusitis
     Dates: start: 20241112, end: 20241117
  2. CITALOPRAM [Concomitant]
     Active Substance: CITALOPRAM
  3. PARAGARD T 380A [Concomitant]
     Active Substance: COPPER
  4. MELATONIN [Concomitant]
     Active Substance: MELATONIN

REACTIONS (3)
  - Vaginal haemorrhage [None]
  - Nipple pain [None]
  - Nipple swelling [None]

NARRATIVE: CASE EVENT DATE: 20241115
